FAERS Safety Report 5038170-7 (Version None)
Quarter: 2006Q2

REPORT INFORMATION
  Report Type: 
  Country: None (occurrence: None)
  Receive Date: 20060623
  Receipt Date: 20060608
  Transmission Date: 20061013
  Serious: Yes (Other)
  Sender: FDA-Public Use
  Company Number: 2006066200

PATIENT
  Sex: Female

DRUGS (1)
  1. DEPO-PROVERA [Suspect]
     Indication: OVARIAN CYST
     Dosage: (ONLY THREE SHOTS WERE ADMINISTERED), INTRAMUSCULAR
     Route: 030

REACTIONS (6)
  - AMENORRHOEA [None]
  - ANOVULATORY CYCLE [None]
  - INFERTILITY [None]
  - SALPINGITIS [None]
  - THERAPY NON-RESPONDER [None]
  - WEIGHT INCREASED [None]
